FAERS Safety Report 8036469-3 (Version None)
Quarter: 2012Q1

REPORT INFORMATION
  Report Type: 
  Country: None (occurrence: None)
  Receive Date: 20120111
  Receipt Date: 20120105
  Transmission Date: 20120608
  Serious: Yes (Other)
  Sender: FDA-Public Use
  Company Number: CA-JNJFOC-20100204506

PATIENT
  Sex: Male
  Weight: 80.3 kg

DRUGS (10)
  1. STELARA [Suspect]
     Route: 058
     Dates: start: 20090904
  2. ROSUVASTATIN [Concomitant]
     Indication: HYPERLIPIDAEMIA
     Dates: start: 20080901
  3. STELARA [Suspect]
     Indication: PSORIASIS
     Route: 058
     Dates: start: 20091008
  4. ASPIRIN [Concomitant]
     Indication: TRANSIENT ISCHAEMIC ATTACK
     Dates: start: 20080901
  5. NAPROXEN [Suspect]
     Indication: PRODUCT USED FOR UNKNOWN INDICATION
  6. NITROGLYCERIN [Concomitant]
     Indication: ANGINA PECTORIS
     Dates: start: 20090801
  7. ASPIRIN [Concomitant]
     Indication: CEREBROVASCULAR ACCIDENT
     Dates: start: 20080901
  8. GLYBURIDE [Concomitant]
     Indication: DIABETES MELLITUS
     Dates: start: 20090701
  9. RAMIPRIL [Concomitant]
     Indication: HYPERTENSION
     Dates: start: 20080901
  10. GLICLAZIDE [Concomitant]
     Indication: DIABETES MELLITUS
     Dates: start: 20090701

REACTIONS (1)
  - CEREBROVASCULAR ACCIDENT [None]
